FAERS Safety Report 14296951 (Version 1)
Quarter: 2017Q4

REPORT INFORMATION
  Report Type: Spontaneous
  Country: JP (occurrence: JP)
  Receive Date: 20171218
  Receipt Date: 20171218
  Transmission Date: 20180321
  Serious: Yes (Other)
  Sender: FDA-Public Use
  Company Number: JP-PFIZER INC-2017531605

PATIENT

DRUGS (1)
  1. SUTENT [Suspect]
     Active Substance: SUNITINIB MALATE
     Dosage: UNK
     Route: 048

REACTIONS (5)
  - Ascites [Unknown]
  - Blood pressure increased [Unknown]
  - Skin atrophy [Unknown]
  - Pain of skin [Unknown]
  - Diarrhoea [Unknown]
